FAERS Safety Report 7470417-X (Version None)
Quarter: 2011Q2

REPORT INFORMATION
  Report Type: 
  Country: None (occurrence: None)
  Receive Date: 20110510
  Receipt Date: 20110426
  Transmission Date: 20111010
  Serious: Yes (Hospitalization, Other)
  Sender: FDA-Public Use
  Company Number: US-BAYER-201042051NA

PATIENT
  Age: 48 Year
  Sex: Female
  Weight: 68.027 kg

DRUGS (9)
  1. ATENOLOL [Concomitant]
     Dosage: UNK UNK, QD
  2. CARISOPRODOL [Concomitant]
  3. FERROUS GLUCONATE [Concomitant]
  4. LEXAPRO [Concomitant]
  5. HYDROCODONE BITARTRATE AND ACETAMINOPHEN [Concomitant]
  6. NEXIUM [Concomitant]
     Dosage: 40 MG, QD
  7. PROVERA [Concomitant]
     Dosage: 10 MG, UNK
  8. YAZ [Suspect]
     Indication: MENORRHAGIA
     Dosage: UNK
     Route: 048
     Dates: start: 20070101, end: 20070201
  9. ALPRAZOLAM [Concomitant]

REACTIONS (1)
  - PELVIC VENOUS THROMBOSIS [None]
